FAERS Safety Report 7916888-3 (Version None)
Quarter: 2011Q4

REPORT INFORMATION
  Report Type: 
  Country: None (occurrence: None)
  Receive Date: 20111116
  Receipt Date: 20111102
  Transmission Date: 20120403
  Serious: Yes (Life-Threatening, Hospitalization)
  Sender: FDA-Public Use
  Company Number: GB-TEVA-308091ISR

PATIENT
  Age: 75 Year
  Sex: Female
  Weight: 58 kg

DRUGS (3)
  1. CITALOPRAM HYDROBROMIDE [Suspect]
     Route: 048
     Dates: end: 20110610
  2. TRAMADOL HCL [Concomitant]
     Route: 048
     Dates: end: 20110610
  3. METHYLENE BLUE [Suspect]
     Dates: start: 20110609, end: 20110609

REACTIONS (3)
  - SEROTONIN SYNDROME [None]
  - NEUROTOXICITY [None]
  - DRUG INTERACTION [None]
